FAERS Safety Report 5817955-0 (Version None)
Quarter: 2008Q3

REPORT INFORMATION
  Report Type: 
  Country: None (occurrence: None)
  Receive Date: 20080722
  Receipt Date: 20070720
  Transmission Date: 20090109
  Serious: Yes (Other)
  Sender: FDA-Public Use
  Company Number: US-BAYER-US-2007-027174

PATIENT
  Age: 38 Year
  Sex: Female
  Weight: 73 kg

DRUGS (4)
  1. MAGNEVIST [Suspect]
     Indication: NUCLEAR MAGNETIC RESONANCE IMAGING BRAIN
     Dosage: UNIT DOSE: 14 ML
     Route: 042
     Dates: start: 20070719, end: 20070719
  2. REBIF /NET/ [Concomitant]
     Route: 030
  3. ZONEGRAN [Concomitant]
     Dosage: UNIT DOSE: 100 MG
     Route: 048
  4. ZANAFLEX [Concomitant]
     Route: 048

REACTIONS (3)
  - GRAND MAL CONVULSION [None]
  - NASAL CONGESTION [None]
  - PETIT MAL EPILEPSY [None]
